FAERS Safety Report 10648162 (Version 3)
Quarter: 2015Q1

REPORT INFORMATION
  Report Type: Spontaneous
  Country: US (occurrence: None)
  Receive Date: 20141210
  Receipt Date: 20150203
  Transmission Date: 20150720
  Serious: Yes (Other)
  Sender: FDA-Public Use
  Company Number: US-H14001-14-01776

PATIENT
  Age: 90 Year
  Sex: Female

DRUGS (6)
  1. CARVEDILOL (CARVEDILOL) UNKNOWN [Suspect]
     Active Substance: CARVEDILOL
     Indication: CARDIAC DISORDER
     Dosage: 6.25 MG (3.125 MG, 2 IN 1 D), ORAL
     Route: 048
     Dates: start: 201411
  2. CARDIAC THERAPY [Suspect]
     Active Substance: UNSPECIFIED INGREDIENT
     Indication: CARDIAC DISORDER
  3. ECOTRIN [Concomitant]
     Active Substance: ASPIRIN
  4. CARVEDILOL. [Suspect]
     Active Substance: CARVEDILOL
     Indication: CARDIAC DISORDER
     Dosage: 6.25 MG (3.125 MG, 2 IN 1 D), ORAL
     Route: 048
     Dates: start: 201405, end: 201411
  5. CRESTOR [Concomitant]
     Active Substance: ROSUVASTATIN CALCIUM
  6. BENECOL (STANOZOLOL) [Concomitant]

REACTIONS (7)
  - Fatigue [None]
  - Dyspnoea paroxysmal nocturnal [None]
  - Dyspnoea [None]
  - Chest discomfort [None]
  - Asthenia [None]
  - Somnolence [None]
  - Product substitution issue [None]

NARRATIVE: CASE EVENT DATE: 2014
